FAERS Safety Report 8976442 (Version 1)
Quarter: 2012Q4

REPORT INFORMATION
  Report Type: 
  Country: JP (occurrence: JP)
  Receive Date: 20121220
  Receipt Date: 20121220
  Transmission Date: 20130627
  Serious: Yes (Hospitalization)
  Sender: FDA-Public Use
  Company Number: CHNY2012JP000643

PATIENT
  Sex: Male

DRUGS (1)
  1. NICOTINELL TTS 10 [Suspect]
     Dosage: 1 DF, QD
     Route: 062

REACTIONS (6)
  - Loss of consciousness [Unknown]
  - General physical health deterioration [Unknown]
  - Headache [Unknown]
  - Nausea [Unknown]
  - Treatment noncompliance [Unknown]
  - Overdose [Unknown]
